FAERS Safety Report 21490263 (Version 6)
Quarter: 2022Q4

REPORT INFORMATION
  Report Type: Report from Study
  Country: PE (occurrence: PE)
  Receive Date: 20221021
  Receipt Date: 20221219
  Transmission Date: 20230113
  Serious: Yes (Life-Threatening, Hospitalization, Other)
  Sender: FDA-Public Use
  Company Number: PE-NOVARTISPH-NVSC2020PE344133

PATIENT
  Age: 64 Year
  Sex: Female

DRUGS (7)
  1. KISQALI [Suspect]
     Active Substance: RIBOCICLIB
     Indication: Breast cancer metastatic
     Dosage: 600 MG/KG, QD
     Route: 048
     Dates: start: 20201218, end: 202101
  2. KISQALI [Suspect]
     Active Substance: RIBOCICLIB
     Dosage: 600 MG, QD
     Route: 048
     Dates: start: 20201218, end: 20211012
  3. KISQALI [Suspect]
     Active Substance: RIBOCICLIB
     Dosage: 600 MG, QD
     Route: 048
     Dates: start: 20210121, end: 20211012
  4. KISQALI [Suspect]
     Active Substance: RIBOCICLIB
     Dosage: 600 MG, QD
     Route: 048
     Dates: start: 20221129
  5. LETROZOLE [Suspect]
     Active Substance: LETROZOLE
     Indication: Breast cancer
     Dosage: UNK
     Route: 065
  6. FULVESTRANT [Suspect]
     Active Substance: FULVESTRANT
     Indication: Product used for unknown indication
     Dosage: UNK
     Route: 065
  7. ANASTROZOLE [Concomitant]
     Active Substance: ANASTROZOLE
     Indication: Product used for unknown indication
     Dosage: UNK
     Route: 065

REACTIONS (30)
  - Asphyxia [Unknown]
  - Asthma [Unknown]
  - Chest discomfort [Unknown]
  - Choking [Unknown]
  - Asthenia [Unknown]
  - Neoplasm progression [Unknown]
  - Metastasis [Unknown]
  - Breast pain [Unknown]
  - Decreased immune responsiveness [Unknown]
  - Fracture [Unknown]
  - Weight bearing difficulty [Unknown]
  - Swelling [Unknown]
  - Oropharyngeal pain [Unknown]
  - Fear [Unknown]
  - Malaise [Not Recovered/Not Resolved]
  - Depressed mood [Unknown]
  - Stress [Unknown]
  - Feeling abnormal [Unknown]
  - Illness [Unknown]
  - Fatigue [Unknown]
  - Back pain [Unknown]
  - Erythema [Unknown]
  - Haemoglobin decreased [Unknown]
  - Headache [Recovered/Resolved]
  - Headache [Unknown]
  - Vomiting [Unknown]
  - Diarrhoea [Unknown]
  - Nausea [Unknown]
  - Incorrect dose administered [Unknown]
  - Product dose omission in error [Unknown]

NARRATIVE: CASE EVENT DATE: 20201218
